FAERS Safety Report 24415245 (Version 3)
Quarter: 2025Q1

REPORT INFORMATION
  Report Type: Report from Study
  Country: US (occurrence: US)
  Receive Date: 20241009
  Receipt Date: 20250219
  Transmission Date: 20250408
  Serious: Yes (Hospitalization, Other)
  Sender: TAKEDA
  Company Number: US-TAKEDA-2023TUS120444

PATIENT
  Sex: Female
  Weight: 58.05 kg

DRUGS (9)
  1. BRIGATINIB [Suspect]
     Active Substance: BRIGATINIB
     Indication: Lung neoplasm malignant
  2. BRIGATINIB [Suspect]
     Active Substance: BRIGATINIB
     Dosage: 180 MILLIGRAM, QD
  3. BRIGATINIB [Suspect]
     Active Substance: BRIGATINIB
     Dosage: 180 MILLIGRAM, QD
  4. BRIGATINIB [Suspect]
     Active Substance: BRIGATINIB
     Dosage: 180 MILLIGRAM, QD
  5. BRIGATINIB [Suspect]
     Active Substance: BRIGATINIB
     Dosage: 180 MILLIGRAM, QD
  6. BRIGATINIB [Suspect]
     Active Substance: BRIGATINIB
     Dosage: 180 MILLIGRAM, QD
  7. BRIGATINIB [Suspect]
     Active Substance: BRIGATINIB
     Dosage: 180 MILLIGRAM, QD
  8. CLINDAMYCIN [Concomitant]
     Active Substance: CLINDAMYCIN
  9. FLONASE [Concomitant]
     Active Substance: FLUTICASONE PROPIONATE

REACTIONS (17)
  - Atrial fibrillation [Unknown]
  - Viral infection [Unknown]
  - Cystitis [Unknown]
  - Influenza [Unknown]
  - Cold sweat [Unknown]
  - Product use issue [Unknown]
  - Chills [Unknown]
  - Gait disturbance [Unknown]
  - Back pain [Unknown]
  - Constipation [Unknown]
  - Pain [Unknown]
  - Headache [Unknown]
  - Dizziness [Unknown]
  - Muscle spasms [Unknown]
  - Myalgia [Unknown]
  - Asthenia [Unknown]
  - Diarrhoea [Unknown]
